FAERS Safety Report 7199361-2 (Version None)
Quarter: 2011Q1

REPORT INFORMATION
  Report Type: 
  Country: None (occurrence: None)
  Receive Date: 20101228
  Receipt Date: 20101220
  Transmission Date: 20110831
  Serious: Yes (Death, Hospitalization)
  Sender: FDA-Public Use
  Company Number: US-BAYER-200936121GPV

PATIENT
  Sex: Female
  Weight: 44 kg

DRUGS (19)
  1. IBUPROFENO [Concomitant]
     Indication: COLORECTAL CANCER METASTATIC
     Dosage: 600 MG (DAILY DOSE), ,
     Dates: start: 20090928, end: 20091012
  2. MORPHINE [Concomitant]
     Indication: PAIN
     Dosage: 30 MG (DAILY DOSE), , INTRAVENOUS
     Route: 042
     Dates: start: 20091015, end: 20091015
  3. ACETAMINOPHEN [Concomitant]
     Dosage: 3 G (DAILY DOSE), ,
     Dates: start: 20091013, end: 20091015
  4. PRIMPERAN TAB [Concomitant]
     Indication: NAUSEA
     Dosage: 30 MG (DAILY DOSE), ,
     Dates: start: 20090928, end: 20091015
  5. TARDYFERON [Concomitant]
     Indication: ANAEMIA
     Dosage: 256.30 MG (DAILY DOSE), ,
     Dates: start: 20090928, end: 20091012
  6. LEUCOVORIN CALCIUM [Suspect]
     Indication: COLORECTAL CANCER STAGE IV
     Dosage: 522.00
     Route: 042
     Dates: start: 20091005, end: 20091005
  7. DORMICUM [Concomitant]
     Indication: PAIN
     Dosage: 7.5 MG (DAILY DOSE), , INTRAVENOUS
     Route: 042
     Dates: start: 20091015, end: 20091015
  8. FLUOROURACIL [Suspect]
     Dosage: 3312
     Route: 041
     Dates: start: 20091005, end: 20091007
  9. ACETAMINOPHEN [Concomitant]
     Indication: PAIN
     Dosage: 2 G (DAILY DOSE), ,
     Dates: start: 20090928, end: 20091012
  10. PANTOPRAZOLE [Concomitant]
     Indication: PROPHYLAXIS
     Dosage: 40 MG (DAILY DOSE), , INTRAVENOUS
     Route: 042
     Dates: start: 20091013, end: 20091015
  11. PERFALGAN [Concomitant]
     Indication: PAIN
     Dosage: 3 G (DAILY DOSE), , INTRAVENOUS
     Route: 042
     Dates: start: 20091013, end: 20091015
  12. SORAFENIB (RAF KINASE INHIBITOR) [Suspect]
     Indication: COLORECTAL CANCER METASTATIC
     Route: 048
     Dates: start: 20091005, end: 20091013
  13. OMEPRAZOLE [Concomitant]
     Indication: PROPHYLAXIS AGAINST GASTROINTESTINAL ULCER
     Dosage: 20 MG (DAILY DOSE), ,
     Dates: start: 20090928, end: 20091012
  14. ONDANSETRON [Concomitant]
     Indication: PREMEDICATION
     Dosage: 8 MG (DAILY DOSE), ,
     Dates: start: 20091005, end: 20091005
  15. OXALIPLATIN [Suspect]
     Indication: COLORECTAL CANCER STAGE IV
     Dosage: 117.30
     Route: 042
     Dates: start: 20091005, end: 20091005
  16. FLUOROURACIL [Suspect]
     Indication: COLORECTAL CANCER STAGE IV
     Dosage: 552
     Route: 040
     Dates: start: 20091005, end: 20091005
  17. DOPAMINE HYDROCHLORIDE [Concomitant]
     Indication: COLORECTAL CANCER STAGE IV
     Dosage: 400 MG (DAILY DOSE), , INTRAVENOUS
     Route: 042
     Dates: start: 20091014, end: 20091015
  18. DEXAMETHASONE [Concomitant]
     Indication: PREMEDICATION
     Dosage: 16 MG (DAILY DOSE), ,
     Dates: start: 20091005, end: 20091005
  19. PANTOPRAZOLE [Concomitant]
     Dosage: 40 MG (DAILY DOSE), , INTRAVENOUS
     Route: 042
     Dates: start: 20091013, end: 20091015

REACTIONS (4)
  - MUCOSAL INFLAMMATION [None]
  - RENAL FAILURE [None]
  - DIARRHOEA [None]
  - PANCYTOPENIA [None]
